FAERS Safety Report 14925436 (Version 6)
Quarter: 2018Q3

REPORT INFORMATION
  Report Type: Spontaneous
  Country: GB (occurrence: GB)
  Receive Date: 20180522
  Receipt Date: 20180907
  Transmission Date: 20181010
  Serious: Yes (Hospitalization)
  Sender: FDA-Public Use
  Company Number: GB-NOVOPROD-600375

PATIENT
  Age: 18 Year
  Sex: Female

DRUGS (1)
  1. NOVORAPID [Suspect]
     Active Substance: INSULIN ASPART
     Indication: TYPE 1 DIABETES MELLITUS
     Dosage: DOSAGE REGIMEN WAS REPORTED AS VARIABLE AS THE PATIENT WAS CARB COUNTING, TDS
     Route: 065
     Dates: end: 20180507

REACTIONS (3)
  - Diabetic ketoacidosis [Recovered/Resolved]
  - Incorrect dose administered by device [Unknown]
  - Device breakage [Unknown]

NARRATIVE: CASE EVENT DATE: 20180507
